FAERS Safety Report 8976195 (Version 1)
Quarter: 2012Q4

REPORT INFORMATION
  Report Type: 
  Country: US (occurrence: US)
  Receive Date: 20121220
  Receipt Date: 20121220
  Transmission Date: 20130627
  Serious: Yes (Other)
  Sender: FDA-Public Use
  Company Number: PHEH2012US023682

PATIENT
  Age: 68 Year
  Sex: Female

DRUGS (4)
  1. RECLAST [Suspect]
     Indication: OSTEOPOROSIS
     Dosage: 5 mg/100ml, UNK
     Route: 042
     Dates: start: 20121005
  2. CALCIUM [Concomitant]
  3. FISH OIL [Concomitant]
  4. ST. JOHN^S WORT [Concomitant]
     Dosage: UNK UKN, UNK
     Dates: start: 201211

REACTIONS (8)
  - Herpes zoster [Recovered/Resolved]
  - Musculoskeletal pain [Recovered/Resolved]
  - Rash [Recovering/Resolving]
  - Pruritus [Unknown]
  - Influenza like illness [Recovered/Resolved]
  - Pyrexia [Unknown]
  - Headache [Recovered/Resolved]
  - Chills [Unknown]
